FAERS Safety Report 7939292-0 (Version None)
Quarter: 2011Q4

REPORT INFORMATION
  Report Type: 
  Country: None (occurrence: None)
  Receive Date: 20111125
  Receipt Date: 20111121
  Transmission Date: 20120403
  Serious: Yes (Disabling, Other)
  Sender: FDA-Public Use
  Company Number: GB-SP-2011-03375

PATIENT
  Sex: Female
  Weight: 68 kg

DRUGS (5)
  1. ATENOLOL [Concomitant]
     Indication: PRODUCT USED FOR UNKNOWN INDICATION
     Route: 048
  2. IMMUCYST [Suspect]
     Route: 065
     Dates: start: 20110414, end: 20110414
  3. LEVOTHYROXINE SODIUM [Concomitant]
     Indication: THYROID DISORDER
     Route: 048
  4. IMMUCYST [Suspect]
     Indication: PRODUCT USED FOR UNKNOWN INDICATION
     Route: 065
     Dates: start: 20110421, end: 20110505
  5. IMMUCYST [Suspect]
     Route: 065
     Dates: start: 20110325, end: 20110407

REACTIONS (8)
  - UROSEPSIS [None]
  - CYSTITIS [None]
  - BOVINE TUBERCULOSIS [None]
  - CHILLS [None]
  - POLLAKIURIA [None]
  - PYREXIA [None]
  - PUBIC PAIN [None]
  - DYSURIA [None]
